FAERS Safety Report 9919383 (Version 2)
Quarter: 2014Q1

REPORT INFORMATION
  Report Type: Spontaneous
  Country: IT (occurrence: IT)
  Receive Date: 20140224
  Receipt Date: 20140224
  Transmission Date: 20141002
  Serious: Yes (Other)
  Sender: FDA-Public Use
  Company Number: IT-PFIZER INC-2014051261

PATIENT
  Age: 76 Year
  Sex: Female

DRUGS (6)
  1. CORDARONE [Suspect]
     Dosage: UNK
     Route: 048
     Dates: start: 20130101, end: 20131225
  2. LANOXIN [Suspect]
     Dosage: UNK
     Route: 065
     Dates: start: 20130101, end: 20131225
  3. MODURETIC [Concomitant]
     Dosage: UNK
  4. COUMADIN [Concomitant]
     Dosage: UNK
  5. NEO-LOTAN [Concomitant]
     Dosage: UNK
  6. OSIPINE [Concomitant]
     Dosage: UNK

REACTIONS (2)
  - Sinus bradycardia [Recovering/Resolving]
  - Syncope [Recovering/Resolving]
